FAERS Safety Report 15353784 (Version 1)
Quarter: 2018Q3

REPORT INFORMATION
  Report Type: Spontaneous
  Country: GR (occurrence: GR)
  Receive Date: 20180905
  Receipt Date: 20180905
  Transmission Date: 20181010
  Serious: Yes (Other)
  Sender: FDA-Public Use
  Company Number: GR-SA-2018SA158507

PATIENT
  Age: 84 Year
  Sex: Female

DRUGS (1)
  1. IRBESARTAN. [Suspect]
     Active Substance: IRBESARTAN
     Indication: PRODUCT USED FOR UNKNOWN INDICATION
     Dosage: 2 DOSAGE FORMS DAILY; 1 DOSAGE FORM= 150MG IRBESARTAN/ 12.5MG HYDROCHLOROTHIAZIDE

REACTIONS (1)
  - Hypokalaemia [Unknown]
